FAERS Safety Report 4628822-2 (Version None)
Quarter: 2005Q1

REPORT INFORMATION
  Report Type: 
  Country: None (occurrence: None)
  Receive Date: 20050107
  Receipt Date: 20041001
  Transmission Date: 20050727
  Serious: No
  Sender: FDA-Public Use
  Company Number: 234981K04USA

PATIENT
  Age: 38 Year
  Sex: Female

DRUGS (4)
  1. REBIF [Suspect]
     Indication: MULTIPLE SCLEROSIS
     Dosage: 44 MCG, 3 IN 1 WEEKS
     Dates: start: 20031231
  2. SIMVASTATIN [Concomitant]
  3. XANAX [Concomitant]
  4. DARVOCET-N (PROPACET) [Concomitant]

REACTIONS (4)
  - DIZZINESS [None]
  - NAUSEA [None]
  - PAROSMIA [None]
  - VISUAL DISTURBANCE [None]
